FAERS Safety Report 6825822-9 (Version None)
Quarter: 2010Q3

REPORT INFORMATION
  Report Type: 
  Country: None (occurrence: None)
  Receive Date: 20100708
  Receipt Date: 20100708
  Transmission Date: 20110219
  Serious: Yes (Other)
  Sender: FDA-Public Use
  Company Number: None

PATIENT
  Sex: Female
  Weight: 61.2356 kg

DRUGS (2)
  1. HYDROCODONE BITARTRATE + ACETAMINOPHEN [Suspect]
     Indication: PAIN
     Dosage: 1 Q6H PRN / PO
     Route: 048
     Dates: start: 20040801
  2. HYDROCODONE BITARTRATE + ACETAMINOPHEN [Suspect]
     Dosage: 1 Q6H PRN / PO
     Route: 048
     Dates: start: 20040801

REACTIONS (4)
  - DRUG HYPERSENSITIVITY [None]
  - PRODUCT SUBSTITUTION ISSUE [None]
  - TONGUE OEDEMA [None]
  - URTICARIA [None]
